FAERS Safety Report 14975277 (Version 1)
Quarter: 2018Q2

REPORT INFORMATION
  Report Type: Spontaneous
  Country: US (occurrence: CA)
  Receive Date: 20180605
  Receipt Date: 20180605
  Transmission Date: 20180711
  Serious: Yes (Hospitalization)
  Sender: FDA-Public Use
  Company Number: CA-CELGENEUS-CAN-20180511125

PATIENT
  Age: 44 Year
  Sex: Male

DRUGS (1)
  1. OTEZLA [Suspect]
     Active Substance: APREMILAST
     Indication: PSORIASIS
     Dosage: 30 MILLIGRAM
     Route: 048
     Dates: start: 20160419

REACTIONS (3)
  - Accident at work [Unknown]
  - Psoriasis [Recovering/Resolving]
  - Drug dose omission [Unknown]

NARRATIVE: CASE EVENT DATE: 20180404
